FAERS Safety Report 8942959 (Version 2)
Quarter: 2012Q4

REPORT INFORMATION
  Report Type: 
  Country: JP (occurrence: JP)
  Receive Date: 20121204
  Receipt Date: 20121218
  Transmission Date: 20130627
  Serious: Yes (Other)
  Sender: FDA-Public Use
  Company Number: JP-PFIZER INC-2012301696

PATIENT
  Age: 47 Year
  Sex: Male

DRUGS (12)
  1. LIPITOR [Suspect]
     Dosage: UNK
     Route: 048
  2. SEDIEL [Concomitant]
     Dosage: UNK
  3. ABILIFY [Concomitant]
     Dosage: UNK
     Route: 048
  4. AKINETON [Concomitant]
     Dosage: UNK
     Route: 048
  5. LIMAS [Concomitant]
     Dosage: UNK
     Route: 048
  6. RIVOTRIL [Concomitant]
     Dosage: UNK
     Route: 048
  7. RISPERDAL [Concomitant]
     Dosage: UNK
  8. SOLANAX [Concomitant]
     Dosage: UNK
  9. ROHYPNOL [Concomitant]
     Dosage: UNK
  10. LAMICTAL [Concomitant]
     Dosage: UNK
  11. DEPAKENE [Concomitant]
     Dosage: UNK
  12. WYPAX [Concomitant]
     Dosage: UNK

REACTIONS (1)
  - Mania [Unknown]
